FAERS Safety Report 21607055 (Version 2)
Quarter: 2022Q4

REPORT INFORMATION
  Report Type: Report from Study
  Country: US (occurrence: US)
  Receive Date: 20221117
  Receipt Date: 20221223
  Transmission Date: 20230112
  Serious: Yes (Other)
  Sender: FDA-Public Use
  Company Number: US-ABBVIE-4157066

PATIENT
  Age: 58 Year
  Sex: Male

DRUGS (7)
  1. HUMIRA [Suspect]
     Active Substance: ADALIMUMAB
     Indication: Ankylosing spondylitis
     Dosage: CF - FORM STRENGTH: 40 MG
     Route: 058
     Dates: start: 20220919, end: 20221013
  2. HUMIRA [Suspect]
     Active Substance: ADALIMUMAB
     Dosage: CF- FORM STRENGTH: 40 MG
     Route: 058
     Dates: start: 20220711, end: 2022
  3. HUMIRA [Suspect]
     Active Substance: ADALIMUMAB
     Dosage: CF- FORM STRENGTH: 40 MG
     Route: 058
     Dates: start: 2022
  4. ACTRAPHANE [Concomitant]
     Active Substance: INSULIN HUMAN
     Indication: Product used for unknown indication
  5. ASPIRIN [Concomitant]
     Active Substance: ASPIRIN
     Indication: Product used for unknown indication
  6. ZETIA [Concomitant]
     Active Substance: EZETIMIBE
     Indication: Product used for unknown indication
  7. ACETAMINOPHEN [Concomitant]
     Active Substance: ACETAMINOPHEN
     Indication: Product used for unknown indication

REACTIONS (5)
  - Cholelithiasis [Recovering/Resolving]
  - Abdominal pain upper [Recovered/Resolved]
  - Cholelithiasis [Unknown]
  - Liver function test increased [Not Recovered/Not Resolved]
  - Hepatic enzyme increased [Recovered/Resolved]

NARRATIVE: CASE EVENT DATE: 20220926
